FAERS Safety Report 6200633-6 (Version None)
Quarter: 2009Q2

REPORT INFORMATION
  Report Type: 
  Country: None (occurrence: None)
  Receive Date: 20090522
  Receipt Date: 20090515
  Transmission Date: 20091009
  Serious: Yes (Death, Other)
  Sender: FDA-Public Use
  Company Number: MW-B.I. PHARMACEUTICALS,INC./RIDGEFIELD-2009-DE-03318GD

PATIENT

DRUGS (3)
  1. NEVIRAPINE [Suspect]
     Indication: HIV INFECTION
  2. TRIOMUNE [Suspect]
     Indication: HIV INFECTION
  3. ANTIRETROVIRAL AGENTS [Concomitant]
     Indication: HIV INFECTION

REACTIONS (8)
  - HEPATITIS [None]
  - HYPERSENSITIVITY [None]
  - JAUNDICE [None]
  - OPPORTUNISTIC INFECTION [None]
  - PYREXIA [None]
  - RASH MACULO-PAPULAR [None]
  - STEVENS-JOHNSON SYNDROME [None]
  - TOXIC EPIDERMAL NECROLYSIS [None]
